FAERS Safety Report 25242958 (Version 1)
Quarter: 2025Q2

REPORT INFORMATION
  Report Type: Report from Study
  Country: GB (occurrence: GB)
  Receive Date: 20250428
  Receipt Date: 20250428
  Transmission Date: 20250717
  Serious: Yes (Other)
  Sender: ABBVIE
  Company Number: GB-ABBVIE-6248137

PATIENT
  Sex: Male

DRUGS (1)
  1. HUMIRA [Suspect]
     Active Substance: ADALIMUMAB
     Indication: Psoriatic arthropathy
     Dosage: DOSE FORM- SUSPENSION FOR INJECTION IN PRE-FILLED PEN?STRENGTH- 40MG/0.4ML
     Route: 058

REACTIONS (2)
  - Nasal operation [Unknown]
  - Dental care [Unknown]
